FAERS Safety Report 6898062-5 (Version None)
Quarter: 2010Q3

REPORT INFORMATION
  Report Type: 
  Country: None (occurrence: None)
  Receive Date: 20100802
  Receipt Date: 20070829
  Transmission Date: 20110219
  Serious: Yes (Hospitalization)
  Sender: FDA-Public Use
  Company Number: US-PFIZER INC-2007066494

PATIENT
  Age: 86 Year
  Sex: Female

DRUGS (1)
  1. LYRICA [Suspect]
     Dates: start: 20070101

REACTIONS (5)
  - ABNORMAL BEHAVIOUR [None]
  - CARDIAC FAILURE [None]
  - DISTURBANCE IN ATTENTION [None]
  - OEDEMA [None]
  - SOMNOLENCE [None]
